FAERS Safety Report 4790811-5 (Version None)
Quarter: 2005Q4

REPORT INFORMATION
  Report Type: 
  Country: None (occurrence: None)
  Receive Date: 20051006
  Receipt Date: 20050622
  Transmission Date: 20060501
  Serious: Yes (Hospitalization)
  Sender: FDA-Public Use
  Company Number: US-MERCK-0506USA03301

PATIENT
  Age: 50 Year
  Sex: Female
  Weight: 112 kg

DRUGS (10)
  1. VIOXX [Suspect]
     Indication: FIBROMYALGIA
     Route: 048
     Dates: start: 19991018, end: 20041003
  2. VIOXX [Suspect]
     Indication: ARTHRITIS
     Route: 048
     Dates: start: 19991018, end: 20041003
  3. PREMARIN [Concomitant]
     Route: 065
     Dates: start: 19810101
  4. NORVASC [Concomitant]
     Route: 065
     Dates: start: 19990901
  5. NORVASC [Concomitant]
     Route: 065
  6. ULTRAM [Concomitant]
     Route: 065
  7. AMITRIPTYLINE HYDROCHLORIDE [Concomitant]
     Route: 065
  8. ASPIRIN [Concomitant]
     Route: 065
  9. VITAMIN E [Concomitant]
     Route: 065
  10. DAYPRO [Concomitant]
     Route: 065

REACTIONS (10)
  - ANGINA UNSTABLE [None]
  - ANXIETY [None]
  - ARTERIOSCLEROSIS CORONARY ARTERY [None]
  - BRONCHITIS [None]
  - CHRONIC OBSTRUCTIVE PULMONARY DISEASE [None]
  - HIATUS HERNIA [None]
  - LIPOMA [None]
  - MYOCARDIAL INFARCTION [None]
  - POLYP [None]
  - SKIN LACERATION [None]
